FAERS Safety Report 14596083 (Version 1)
Quarter: 2018Q1

REPORT INFORMATION
  Report Type: Spontaneous
  Country: US (occurrence: US)
  Receive Date: 20180303
  Receipt Date: 20180303
  Transmission Date: 20180509
  Serious: No
  Sender: FDA-Public Use
  Company Number: US-GLAXOSMITHKLINE-US2018GSK033743

PATIENT
  Sex: Male

DRUGS (5)
  1. ROPINIROLE TABLET [Suspect]
     Active Substance: ROPINIROLE
     Dosage: 3 MG, QD ONE TABLET BY MOUTH 30 MINUTES BEFORE BEDTIME
     Route: 048
     Dates: start: 20111203
  2. REQUIP [Suspect]
     Active Substance: ROPINIROLE HYDROCHLORIDE
     Dosage: 1 MG, ONE AND ONE-HALF TABLETS OF THE 1 MG ROPINIROLE BY MOUTH EVERY NIGHT AT BEDTIME
     Route: 048
     Dates: start: 20111003
  3. ROPINIROLE TABLET [Suspect]
     Active Substance: ROPINIROLE
     Indication: RESTLESS LEGS SYNDROME
     Dosage: 1 MG, QD 1 TABLET BY MOUTH 30 MINUTES PRIOR TO BEDTIME
     Route: 048
     Dates: start: 20110414
  4. REQUIP [Suspect]
     Active Substance: ROPINIROLE HYDROCHLORIDE
     Indication: RESTLESS LEGS SYNDROME
     Dosage: 0.5 MG, QD 1 TABLET BY MOUTH 30 MINUTES-1 HR PRIOR TO BEDTIME
     Route: 048
     Dates: start: 20101006
  5. ROPINIROLE TABLET [Suspect]
     Active Substance: ROPINIROLE
     Dosage: 2 MG, 1 TABLET BY MOUTH EVERY EVENING AND AT BEDTIME
     Dates: start: 20121109

REACTIONS (1)
  - Gambling disorder [Unknown]
